FAERS Safety Report 4500756-3 (Version None)
Quarter: 2004Q4

REPORT INFORMATION
  Report Type: 
  Country: None (occurrence: None)
  Receive Date: 20041109
  Receipt Date: 20041022
  Transmission Date: 20050328
  Serious: Yes (Life-Threatening)
  Sender: FDA-Public Use
  Company Number: 10061949-NA04-4

PATIENT
  Age: 7 Year
  Sex: Male

DRUGS (15)
  1. TRAVASOL 10% [Suspect]
     Indication: GASTROSCHISIS
     Dosage: 30 GM, OVER 13 HOURS, IV
     Route: 042
     Dates: start: 19990222
  2. TRAVASOL 10% [Suspect]
  3. TRAVASOL 10% [Suspect]
  4. TRAVASOL 10% [Suspect]
  5. TRAVASOL 10% [Suspect]
  6. INTRALIPID 10% [Suspect]
     Indication: GASTROSCHISIS
     Dosage: 150 ML TPN Q 6 DAYS A QK, IV
     Route: 030
     Dates: start: 19990222, end: 20040915
  7. INTRALIPID 10% [Suspect]
  8. INTRALIPID 10% [Suspect]
  9. INFUVITE PEDIATRIC [Suspect]
     Indication: GASTROSCHISIS
     Dosage: 5 ML QD
  10. INFUVITE PEDIATRIC [Suspect]
  11. DEXTROSE [Concomitant]
  12. LACTATED RINGER'S [Concomitant]
  13. MULTI-VITAMIN [Concomitant]
  14. ZANTAC [Concomitant]
  15. STERLE WATER [Concomitant]

REACTIONS (1)
  - CHOLESTASIS [None]
